FAERS Safety Report 14590759 (Version 1)
Quarter: 2018Q1

REPORT INFORMATION
  Report Type: Spontaneous
  Country: US (occurrence: US)
  Receive Date: 20180301
  Receipt Date: 20180301
  Transmission Date: 20180509
  Serious: Yes (Hospitalization, Other)
  Sender: FDA-Public Use
  Company Number: None

PATIENT
  Age: 65 Year
  Sex: Female
  Weight: 78.16 kg

DRUGS (14)
  1. COQ 10 [Concomitant]
     Active Substance: UBIDECARENONE
  2. LORAZEPAM. [Concomitant]
     Active Substance: LORAZEPAM
  3. MULTIVITAMIN ADULTS 50+ [Concomitant]
  4. VITAMIN B COMPLEX [Concomitant]
     Active Substance: CYANOCOBALAMIN\DEXPANTHENOL\NIACINAMIDE\PYRIDOXINE HYDROCHLORIDE\RIBOFLAVIN 5^-PHOSPHATE SODIUM\THIAMINE HYDROCHLORIDE\VITAMIN B COMPLEX
  5. VITAMIN C [Concomitant]
     Active Substance: ASCORBIC ACID
  6. CALCIUM 600 [Concomitant]
  7. BIOTIN [Concomitant]
     Active Substance: BIOTIN
  8. OXYCONTIN [Concomitant]
     Active Substance: OXYCODONE HYDROCHLORIDE
  9. ELIQUIS [Concomitant]
     Active Substance: APIXABAN
  10. ONDANSETRON [Concomitant]
     Active Substance: ONDANSETRON
  11. CAPECITABINE. [Suspect]
     Active Substance: CAPECITABINE
     Indication: BREAST CANCER
     Dosage: OTHER FREQUENCY:5T AM+4T PM;?
     Route: 048
     Dates: start: 20180131
  12. VITAMIN D3 [Concomitant]
     Active Substance: CHOLECALCIFEROL
  13. FOLIC ACID. [Concomitant]
     Active Substance: FOLIC ACID
  14. MAGNESIUM [Concomitant]
     Active Substance: MAGNESIUM

REACTIONS (1)
  - Gastrointestinal haemorrhage [None]
